FAERS Safety Report 5903958-4 (Version None)
Quarter: 2008Q3

REPORT INFORMATION
  Report Type: 
  Country: None (occurrence: None)
  Receive Date: 20080919
  Receipt Date: 20080702
  Transmission Date: 20090109
  Serious: No
  Sender: FDA-Public Use
  Company Number: US-WYE-H04868308

PATIENT
  Age: 46 Year
  Sex: Female
  Weight: 83.08 kg

DRUGS (5)
  1. PRISTIQ [Suspect]
     Indication: BIPOLAR DISORDER
     Dosage: 25 MG 1X PER 1 DAY, ORAL
     Route: 048
     Dates: start: 20080612
  2. PRISTIQ [Suspect]
     Indication: MAJOR DEPRESSION
     Dosage: 25 MG 1X PER 1 DAY, ORAL
     Route: 048
     Dates: start: 20080612
  3. CLONAZEPAM [Concomitant]
  4. ACETAMINOPHEN [Concomitant]
  5. BENADRYL [Concomitant]

REACTIONS (5)
  - DECREASED APPETITE [None]
  - DRY MOUTH [None]
  - MENSTRUATION DELAYED [None]
  - THIRST [None]
  - WEIGHT DECREASED [None]
